FAERS Safety Report 15080719 (Version 1)
Quarter: 2018Q2

REPORT INFORMATION
  Report Type: Spontaneous
  Country: GB (occurrence: GB)
  Receive Date: 20180628
  Receipt Date: 20180628
  Transmission Date: 20180711
  Serious: Yes (Disabling)
  Sender: FDA-Public Use
  Company Number: GB-TEVA-2018-GB-913352

PATIENT
  Age: 6 Year
  Sex: Male
  Weight: 17 kg

DRUGS (1)
  1. AMOXICILLIN. [Suspect]
     Active Substance: AMOXICILLIN
     Route: 065
     Dates: start: 20180516

REACTIONS (2)
  - Pruritus [Recovered/Resolved]
  - Dermatitis allergic [Recovered/Resolved]

NARRATIVE: CASE EVENT DATE: 2018
